FAERS Safety Report 13232071 (Version 5)
Quarter: 2017Q3

REPORT INFORMATION
  Report Type: Spontaneous
  Country: KR (occurrence: KR)
  Receive Date: 20170214
  Receipt Date: 20170824
  Transmission Date: 20171127
  Serious: No
  Sender: FDA-Public Use
  Company Number: KR-009507513-1702KOR005604

PATIENT
  Age: 48 Year
  Sex: Female
  Weight: 48.5 kg

DRUGS (41)
  1. EMEND (FOSAPREPITANT DIMEGLUMINE) [Suspect]
     Active Substance: FOSAPREPITANT DIMEGLUMINE
     Dosage: 150 MG, ONCE
     Route: 042
     Dates: start: 20160809, end: 20160809
  2. EMEND (FOSAPREPITANT DIMEGLUMINE) [Suspect]
     Active Substance: FOSAPREPITANT DIMEGLUMINE
     Dosage: 150 MG, ONCE
     Route: 042
     Dates: start: 20160920, end: 20160920
  3. EMEND (FOSAPREPITANT DIMEGLUMINE) [Suspect]
     Active Substance: FOSAPREPITANT DIMEGLUMINE
     Dosage: 150 MG, ONCE
     Route: 042
     Dates: start: 20161101, end: 20161101
  4. SANCUSO [Concomitant]
     Active Substance: GRANISETRON
     Dosage: 1 DF, QD, ROUTE AND FORMULATION: PATCH
     Route: 050
     Dates: start: 20161011, end: 20161013
  5. ALOXI [Concomitant]
     Active Substance: PALONOSETRON HYDROCHLORIDE
     Dosage: 0.25 MG, ONCE
     Route: 042
     Dates: start: 20161101, end: 20161101
  6. LANSTON [Concomitant]
     Active Substance: LANSOPRAZOLE
     Indication: PROPHYLAXIS
     Dosage: 15 MG (1 TABLET), QD
     Route: 048
     Dates: start: 20160805
  7. EMEND (FOSAPREPITANT DIMEGLUMINE) [Suspect]
     Active Substance: FOSAPREPITANT DIMEGLUMINE
     Indication: PROPHYLAXIS OF NAUSEA AND VOMITING
     Dosage: 150 MG, ONCE
     Route: 042
     Dates: start: 20160709, end: 20160709
  8. EMEND (FOSAPREPITANT DIMEGLUMINE) [Suspect]
     Active Substance: FOSAPREPITANT DIMEGLUMINE
     Dosage: 150 MG, ONCE
     Route: 042
     Dates: start: 20160830, end: 20160830
  9. CISPLAN [Concomitant]
     Active Substance: CISPLATIN
     Indication: BREAST CANCER
     Dosage: 83 MG, ONCE, CYCLE 3, STRENGTH: 50MG/100ML
     Route: 042
     Dates: start: 20160709, end: 20160709
  10. CISPLAN [Concomitant]
     Active Substance: CISPLATIN
     Dosage: 84 MG, ONCE, CYCLE 4
     Route: 042
     Dates: start: 20160809, end: 20160809
  11. GEMZAR [Concomitant]
     Active Substance: GEMCITABINE HYDROCHLORIDE
     Dosage: 1750 MG, QD, INJECTED TWO TIMES ON 20-SEP-2016 AND 27-SEP-2016; CYCLE 6
     Route: 042
     Dates: start: 20160920, end: 20160927
  12. GEMZAR [Concomitant]
     Active Substance: GEMCITABINE HYDROCHLORIDE
     Dosage: 1800 MG, QD, INJECTED TWO TIMES ON 12-OCT-2016 AND 19-OCT-2016; CYCLE 7
     Route: 042
     Dates: start: 20161012, end: 20161019
  13. DEXAMETHASONE SODIUM PHOSPHATE. [Concomitant]
     Active Substance: DEXAMETHASONE SODIUM PHOSPHATE
     Dosage: 5 MG, ONCE
     Route: 042
     Dates: start: 20160809, end: 20160809
  14. DEXAMETHASONE SODIUM PHOSPHATE. [Concomitant]
     Active Substance: DEXAMETHASONE SODIUM PHOSPHATE
     Dosage: 5 MG, ONCE
     Route: 042
     Dates: start: 20160920, end: 20160920
  15. DEXAMETHASONE. [Concomitant]
     Active Substance: DEXAMETHASONE
     Dosage: 4 MG, QD
     Route: 048
     Dates: start: 20160921, end: 20160923
  16. ALOXI [Concomitant]
     Active Substance: PALONOSETRON HYDROCHLORIDE
     Indication: CHEMOTHERAPY
     Dosage: 0.25 MG, ONCE
     Route: 042
     Dates: start: 20160830, end: 20160830
  17. MIRAPEX [Concomitant]
     Active Substance: PRAMIPEXOLE DIHYDROCHLORIDE
     Indication: PROPHYLAXIS
     Dosage: 0.5 MG (1 TABLET), QD
     Route: 048
  18. ADCAL (CALCIUM CARBONATE (+) CALCIUM GLUCONATE (+) CALCIUM LACTATE (+) [Concomitant]
     Active Substance: CALCIUM CARBONATE\CALCIUM GLUCONATE\CALCIUM LACTATE
     Indication: PROPHYLAXIS
     Dosage: 1 TABLET, QD
     Route: 048
  19. SANCUSO [Concomitant]
     Active Substance: GRANISETRON
     Dosage: 1 DF, QD, ROUTE AND FORMULATION: PATCH
     Route: 050
     Dates: start: 20161018, end: 20161020
  20. DEXAMETHASONE SODIUM PHOSPHATE. [Concomitant]
     Active Substance: DEXAMETHASONE SODIUM PHOSPHATE
     Dosage: 5 MG, ONCE
     Route: 042
     Dates: start: 20160830, end: 20160830
  21. DEXAMETHASONE SODIUM PHOSPHATE. [Concomitant]
     Active Substance: DEXAMETHASONE SODIUM PHOSPHATE
     Dosage: 5 MG, ONCE
     Route: 042
     Dates: start: 20161012, end: 20161012
  22. DEXAMETHASONE. [Concomitant]
     Active Substance: DEXAMETHASONE
     Indication: PROPHYLAXIS
     Dosage: 8 MG, QD
     Route: 048
     Dates: start: 20160710, end: 20160712
  23. SANCUSO [Concomitant]
     Active Substance: GRANISETRON
     Dosage: 1 DF, QD, ROUTE AND FORMULATION: PATCH
     Route: 050
     Dates: start: 20160919, end: 20160921
  24. CISPLAN [Concomitant]
     Active Substance: CISPLATIN
     Dosage: 70 MG, ONCE, CYCLE 5
     Route: 042
     Dates: start: 20160830, end: 20160830
  25. GEMZAR [Concomitant]
     Active Substance: GEMCITABINE HYDROCHLORIDE
     Dosage: 1750 MG, QD, INJECTED TWO TIMES ON 09-AUG-2016 AND 16-AUG-2016; CYCLE 4
     Route: 042
     Dates: start: 20160809, end: 20160816
  26. DEXAMETHASONE SODIUM PHOSPHATE. [Concomitant]
     Active Substance: DEXAMETHASONE SODIUM PHOSPHATE
     Dosage: 5 MG, ONCE
     Route: 042
     Dates: start: 20161101, end: 20161101
  27. DEXAMETHASONE. [Concomitant]
     Active Substance: DEXAMETHASONE
     Dosage: 8 MG, QD
     Route: 048
     Dates: start: 20160810, end: 20160812
  28. DEXAMETHASONE. [Concomitant]
     Active Substance: DEXAMETHASONE
     Dosage: 4 MG, QD
     Route: 048
     Dates: start: 20160901, end: 20160903
  29. DEXAMETHASONE. [Concomitant]
     Active Substance: DEXAMETHASONE
     Dosage: 4 MG, QD
     Route: 048
     Dates: start: 20161102, end: 20161102
  30. SANCUSO [Concomitant]
     Active Substance: GRANISETRON
     Indication: PREMEDICATION
     Dosage: 1 DF, QD, ROUTE AND FORMULATION: PATCH
     Route: 050
     Dates: start: 20160708, end: 20160710
  31. SANCUSO [Concomitant]
     Active Substance: GRANISETRON
     Dosage: 1 DF, QD, ROUTE AND FORMULATION: PATCH
     Route: 050
     Dates: start: 20160808, end: 20160810
  32. GEMZAR [Concomitant]
     Active Substance: GEMCITABINE HYDROCHLORIDE
     Dosage: 1750 MG, QD, INJECTED TWO TIMES ON 30-AUG-2016 AND 06-SEP-2016; CYCLE 5
     Route: 042
     Dates: start: 20160830, end: 20160906
  33. GEMZAR [Concomitant]
     Active Substance: GEMCITABINE HYDROCHLORIDE
     Dosage: 1840 MG, QD, INJECTED TWO TIMES ON 02-NOV-2016 AND 08-NOV-2016; CYCLE 8
     Route: 042
     Dates: start: 20161101, end: 20161108
  34. EMEND (FOSAPREPITANT DIMEGLUMINE) [Suspect]
     Active Substance: FOSAPREPITANT DIMEGLUMINE
     Dosage: 150 MG, ONCE
     Route: 042
     Dates: start: 20161012, end: 20161012
  35. CISPLAN [Concomitant]
     Active Substance: CISPLATIN
     Dosage: 98 MG, ONCE, CYCLE 6
     Route: 042
     Dates: start: 20160920, end: 20160920
  36. CISPLAN [Concomitant]
     Active Substance: CISPLATIN
     Dosage: 100 MG, ONCE, CYCLE 7
     Route: 042
     Dates: start: 20161012, end: 20161012
  37. CISPLAN [Concomitant]
     Active Substance: CISPLATIN
     Dosage: 100 MG, ONCE, CYCLE 8,
     Route: 042
     Dates: start: 20161101, end: 20161101
  38. GEMZAR [Concomitant]
     Active Substance: GEMCITABINE HYDROCHLORIDE
     Indication: BREAST CANCER
     Dosage: 1720 MG, QD, INJECTED TWO TIMES ON 09-JUL-2016 AND 16-JUL-2016; CYCLE 3
     Route: 042
     Dates: start: 20160709, end: 20160716
  39. DEXAMETHASONE SODIUM PHOSPHATE. [Concomitant]
     Active Substance: DEXAMETHASONE SODIUM PHOSPHATE
     Indication: PREMEDICATION
     Dosage: 5 MG, ONCE, STRENGTH: 5MG/ML
     Route: 042
     Dates: start: 20160709, end: 20160709
  40. CORTISOLU [Concomitant]
     Active Substance: HYDROCORTISONE SODIUM SUCCINATE
     Indication: PREMEDICATION
     Dosage: 50 MG, ONCE
     Route: 042
     Dates: start: 20161101, end: 20161101
  41. AMPHOJEL [Concomitant]
     Active Substance: ALUMINUM HYDROXIDE
     Indication: PROPHYLAXIS OF NAUSEA AND VOMITING
     Dosage: 300 MG (1 TABLET), BID
     Route: 048
     Dates: start: 20160709

REACTIONS (1)
  - Flank pain [Recovering/Resolving]

NARRATIVE: CASE EVENT DATE: 20161101
